FAERS Safety Report 21381130 (Version 5)
Quarter: 2024Q3

REPORT INFORMATION
  Report Type: Report from Study
  Country: US (occurrence: US)
  Receive Date: 20220927
  Receipt Date: 20240911
  Transmission Date: 20241016
  Serious: Yes (Other)
  Sender: ABBVIE
  Company Number: US-ABBVIE-22K-163-4518673-00

PATIENT
  Sex: Female

DRUGS (6)
  1. IMBRUVICA [Suspect]
     Active Substance: IBRUTINIB
     Indication: Chronic lymphocytic leukaemia
     Route: 048
  2. IMBRUVICA [Suspect]
     Active Substance: IBRUTINIB
     Indication: Chronic lymphocytic leukaemia
     Route: 048
     Dates: start: 20170401
  3. IMBRUVICA [Suspect]
     Active Substance: IBRUTINIB
     Indication: Chronic lymphocytic leukaemia
     Route: 048
  4. MODERNA COVID-19 VACCINE [Concomitant]
     Active Substance: ELASOMERAN
     Indication: COVID-19 immunisation
     Dosage: TIME INTERVAL: TOTAL: SECOND DOSE?ONE IN ONCE
     Route: 030
     Dates: start: 202104, end: 202104
  5. MODERNA COVID-19 VACCINE [Concomitant]
     Active Substance: ELASOMERAN
     Indication: COVID-19 immunisation
     Dosage: TIME INTERVAL: TOTAL: FIRST DOSE?ONE IN ONCE
     Route: 030
     Dates: start: 20210307, end: 20210307
  6. MODERNA COVID-19 VACCINE [Concomitant]
     Active Substance: ELASOMERAN
     Indication: COVID-19 immunisation
     Dosage: TIME INTERVAL: TOTAL: THIRD DOSE, BOOSTER?ONE IN ONCE
     Route: 030
     Dates: start: 20210909, end: 20210909

REACTIONS (20)
  - Malignant melanoma [Recovering/Resolving]
  - Illness [Unknown]
  - Stress [Unknown]
  - COVID-19 [Recovered/Resolved]
  - Basal cell carcinoma [Recovering/Resolving]
  - Breast cancer female [Unknown]
  - Skin angiosarcoma [Unknown]
  - Liver disorder [Unknown]
  - Renal disorder [Unknown]
  - Skin disorder [Unknown]
  - Lung disorder [Unknown]
  - Visual impairment [Unknown]
  - Cataract [Unknown]
  - Haemorrhage [Unknown]
  - Melanocytic naevus [Unknown]
  - Atrial fibrillation [Unknown]
  - Lymphoedema [Not Recovered/Not Resolved]
  - Cellulitis [Unknown]
  - Skin haemorrhage [Unknown]
  - Weight decreased [Unknown]

NARRATIVE: CASE EVENT DATE: 20190101
